FAERS Safety Report 4778959-2 (Version None)
Quarter: 2005Q3

REPORT INFORMATION
  Report Type: 
  Country: None (occurrence: None)
  Receive Date: 20050922
  Receipt Date: 20050909
  Transmission Date: 20060218
  Serious: Yes (Hospitalization, Other)
  Sender: FDA-Public Use
  Company Number: HQWYE852125JAN05

PATIENT
  Age: 60 Year
  Sex: Male

DRUGS (15)
  1. CORDARONE [Suspect]
     Indication: NODAL ARRHYTHMIA
     Dosage: 200 MG 1X PER 1 DAY
     Route: 048
     Dates: start: 20041201, end: 20050110
  2. RENITEC (ENALPARIL MALEATE) [Concomitant]
  3. PYOSTACINE (PRISTINAMYCIN) [Concomitant]
  4. COZAAR [Concomitant]
  5. HYZAAR [Concomitant]
  6. CYTARABINE [Suspect]
     Indication: LYMPHOCYTIC LEUKAEMIA
     Dosage: POWDER
     Route: 042
     Dates: start: 20041123, end: 20041203
  7. CYTARABINE [Suspect]
     Indication: MYELOID LEUKAEMIA
     Dosage: POWDER
     Route: 042
     Dates: start: 20041123, end: 20041203
  8. DOXORUBICIN HCL [Suspect]
     Indication: LYMPHOCYTIC LEUKAEMIA
     Dosage: POWDER
     Route: 042
     Dates: start: 20041123, end: 20041203
  9. DOXORUBICIN HCL [Suspect]
     Indication: MYELOID LEUKAEMIA
     Dosage: POWDER
     Route: 042
     Dates: start: 20041123, end: 20041203
  10. CYCLOPHOSPHAMIDE [Suspect]
     Indication: LYMPHOCYTIC LEUKAEMIA
     Dosage: POWDER
     Route: 042
     Dates: start: 20041123, end: 20041203
  11. CYCLOPHOSPHAMIDE [Suspect]
     Indication: MYELOID LEUKAEMIA
     Dosage: POWDER
     Route: 042
     Dates: start: 20041123, end: 20041203
  12. ETOPOSIDE ^DAKOTA PHARM^ (ETOPOSIDE,) [Suspect]
     Indication: MYELOID LEUKAEMIA
     Dosage: SOLUTION - 100MG - DAILY DOSE
     Route: 042
     Dates: start: 20041123, end: 20041203
  13. TAZOCILLINE (PIPERACILLIN/TAZOBACTAM, INJECTION) [Suspect]
     Indication: FEBRILE BONE MARROW APLASIA
     Route: 042
     Dates: start: 20041201, end: 20041201
  14. TENORMIN [Suspect]
     Indication: NODAL ARRHYTHMIA
     Dosage: 200 MG 1X PER 1 DAY
     Route: 048
     Dates: start: 20041220, end: 20050110
  15. ALLOPURINOL [Suspect]
     Indication: PROPHYLAXIS
     Route: 048
     Dates: start: 20041119, end: 20041201

REACTIONS (5)
  - DERMATITIS EXFOLIATIVE [None]
  - EYELID OEDEMA [None]
  - HAEMOGLOBIN DECREASED [None]
  - RASH ERYTHEMATOUS [None]
  - RED BLOOD CELL SEDIMENTATION RATE INCREASED [None]
